FAERS Safety Report 4315967-X (Version None)
Quarter: 2004Q1

REPORT INFORMATION
  Report Type: 
  Country: None (occurrence: None)
  Receive Date: 20040302
  Receipt Date: 20031121
  Transmission Date: 20041129
  Serious: Yes (Other)
  Sender: FDA-Public Use
  Company Number: US058099

PATIENT
  Age: 54 Year
  Sex: Male

DRUGS (4)
  1. ENBREL [Suspect]
     Indication: PSORIATIC ARTHROPATHY
     Dosage: 25 MG, TWICE WEEKLY, SC
     Route: 058
     Dates: start: 20010101, end: 20030901
  2. NSAID [Concomitant]
  3. CALCIPOTRIENE [Concomitant]
  4. CORTICOSTEROID NOS [Concomitant]

REACTIONS (1)
  - BLADDER CANCER [None]
